FAERS Safety Report 19705704 (Version 2)
Quarter: 2021Q3

REPORT INFORMATION
  Report Type: Other
  Country: IT (occurrence: IT)
  Receive Date: 20210817
  Receipt Date: 20210826
  Transmission Date: 20211014
  Serious: No
  Sender: FDA-Public Use
  Company Number: IT-CELLTRION INC.-2021IT010838

PATIENT

DRUGS (5)
  1. PERTUZUMAB. [Suspect]
     Active Substance: PERTUZUMAB
     Indication: BREAST CANCER
     Dosage: 1 DOSAGE FORM, CYCLIC
     Route: 042
     Dates: start: 20210323, end: 20210420
  2. TRASTUZUMAB. [Suspect]
     Active Substance: TRASTUZUMAB
     Indication: BREAST CANCER
     Dosage: 1 DOSAGE FORM, CYCLIC
     Route: 042
     Dates: start: 20210323, end: 20210420
  3. ATEZOLIZUMAB. [Suspect]
     Active Substance: ATEZOLIZUMAB
     Indication: BREAST CANCER
     Dosage: 1 DOSAGE FORM, CYCLIC
     Route: 042
     Dates: start: 20210323, end: 20210420
  4. CARBOPLATIN. [Suspect]
     Active Substance: CARBOPLATIN
     Indication: BREAST CANCER
     Dosage: 1 DOSAGE FORM, CYCLIC
     Route: 042
     Dates: start: 20210323, end: 20210420
  5. PACLITAXEL. [Suspect]
     Active Substance: PACLITAXEL
     Indication: BREAST CANCER
     Dosage: 1 DOSAGE FORM, CYCLIC
     Route: 042
     Dates: start: 20210323, end: 20210420

REACTIONS (2)
  - Decreased appetite [Recovering/Resolving]
  - Diarrhoea [Recovering/Resolving]

NARRATIVE: CASE EVENT DATE: 20210424
